FAERS Safety Report 22065638 (Version 2)
Quarter: 2023Q2

REPORT INFORMATION
  Report Type: Spontaneous
  Country: CA (occurrence: CA)
  Receive Date: 20230306
  Receipt Date: 20230502
  Transmission Date: 20230721
  Serious: Yes (Other)
  Sender: FDA-Public Use
  Company Number: CA-PFIZER INC-202300089773

PATIENT
  Age: 30 Year
  Sex: Male
  Weight: 107.9 kg

DRUGS (2)
  1. METHOTREXATE SODIUM [Suspect]
     Active Substance: METHOTREXATE SODIUM
     Dosage: 1 DF, DOSAGE NOT AVAILABLE
     Route: 065
  2. INFLECTRA [Concomitant]
     Active Substance: INFLIXIMAB-DYYB
     Indication: Crohn^s disease
     Dosage: 1 DF, DOSAGE AND FREQUENCY NOT PROVIDED
     Route: 042
     Dates: start: 20230123

REACTIONS (9)
  - Haematochezia [Unknown]
  - Intestinal dilatation [Unknown]
  - Gastrointestinal hypomotility [Recovering/Resolving]
  - Anal erythema [Unknown]
  - Oedema [Not Recovered/Not Resolved]
  - Drug ineffective [Unknown]
  - Diarrhoea [Unknown]
  - Aphthous ulcer [Not Recovered/Not Resolved]
  - Abdominal pain [Unknown]
